FAERS Safety Report 13687695 (Version 3)
Quarter: 2017Q3

REPORT INFORMATION
  Report Type: Spontaneous
  Country: US (occurrence: US)
  Receive Date: 20170625
  Receipt Date: 20170804
  Transmission Date: 20171127
  Serious: Yes (Hospitalization, Other)
  Sender: FDA-Public Use
  Company Number: US-009507513-1706USA007068

PATIENT
  Age: 65 Year
  Sex: Female
  Weight: 61.2 kg

DRUGS (15)
  1. ASPIRIN. [Concomitant]
     Active Substance: ASPIRIN
     Dosage: 81 MG, QD
     Route: 048
     Dates: end: 20170609
  2. WELLBUTRIN XL [Concomitant]
     Active Substance: BUPROPION HYDROCHLORIDE
     Dosage: 300 MG ORAL EXTENDED RELEASE TABLET; 300 MG, QD
     Route: 048
     Dates: end: 20170609
  3. VYTORIN [Concomitant]
     Active Substance: EZETIMIBE\SIMVASTATIN
     Dosage: UNK
     Route: 048
     Dates: end: 20170608
  4. KEYTRUDA [Suspect]
     Active Substance: PEMBROLIZUMAB
     Indication: METASTATIC MALIGNANT MELANOMA
     Dosage: 200 MG, Q3W
     Route: 042
     Dates: start: 20170519, end: 20170628
  5. BENICAR HCT [Concomitant]
     Active Substance: HYDROCHLOROTHIAZIDE\OLMESARTAN MEDOXOMIL
     Dosage: UNK, QD
     Route: 048
     Dates: end: 20170608
  6. LUCENTIS [Concomitant]
     Active Substance: RANIBIZUMAB
     Dosage: BY LNTRAOCULAR ROUTE; STOPPED AS DIRECTED
     Route: 047
  7. CHOLECALCIFEROL [Concomitant]
     Active Substance: CHOLECALCIFEROL
     Dosage: UNK
     Route: 048
     Dates: end: 20170609
  8. EPACADOSTAT [Suspect]
     Active Substance: EPACADOSTAT
     Indication: METASTATIC MALIGNANT MELANOMA
  9. ARMOUR THYROID [Concomitant]
     Active Substance: THYROID, PORCINE
     Dosage: 60 MG QAM AND 45 QHS
     Route: 048
  10. WELLBUTRIN [Concomitant]
     Active Substance: BUPROPION HYDROCHLORIDE
     Dosage: 150 MG, QD
     Route: 048
     Dates: end: 20170609
  11. PRILOSEC [Concomitant]
     Active Substance: OMEPRAZOLE MAGNESIUM
     Dosage: 20 MG, BID
     Route: 048
     Dates: end: 20170609
  12. BENADRYL [Concomitant]
     Active Substance: DIPHENHYDRAMINE HYDROCHLORIDE
     Indication: INSOMNIA
     Dosage: 25 MG AT BEDTIME AS NEEDED
     Route: 048
  13. JANUMET XR [Concomitant]
     Active Substance: METFORMIN HYDROCHLORIDE\SITAGLIPTIN PHOSPHATE
     Dosage: UNK
     Route: 048
     Dates: end: 20170609
  14. IPILIMUMAB [Suspect]
     Active Substance: IPILIMUMAB
     Dosage: 1 MG/KG, Q3W X 4
     Route: 042
     Dates: start: 20170519, end: 20170628
  15. CALCIUM D3 [Concomitant]
     Active Substance: CALCIUM\CHOLECALCIFEROL
     Dosage: 1 TABLET DAILY
     Route: 048
     Dates: end: 20170609

REACTIONS (16)
  - Nausea [Unknown]
  - Colitis [Unknown]
  - Vomiting [Unknown]
  - Metastatic malignant melanoma [Unknown]
  - Dyspnoea [Unknown]
  - Hypoalbuminaemia [Unknown]
  - Intestinal mass [Unknown]
  - Abdominal pain [Unknown]
  - Pleural effusion [Unknown]
  - Hepatic lesion [Unknown]
  - Urinary tract infection [Unknown]
  - Pyrexia [Unknown]
  - Diarrhoea [Unknown]
  - Atelectasis [Unknown]
  - Hypomagnesaemia [Unknown]
  - Dizziness [Unknown]

NARRATIVE: CASE EVENT DATE: 2017
